FAERS Safety Report 8010895-0 (Version None)
Quarter: 2011Q4

REPORT INFORMATION
  Report Type: 
  Country: None (occurrence: None)
  Receive Date: 20111228
  Receipt Date: 20111219
  Transmission Date: 20120403
  Serious: Yes (Death)
  Sender: FDA-Public Use
  Company Number: US-PFIZER INC-2011308885

PATIENT
  Age: 40 Year
  Sex: Female

DRUGS (6)
  1. HYDROMORPHONE HCL [Suspect]
  2. CARISOPRODOL [Suspect]
  3. HYDROCODONE [Suspect]
  4. ACETAMINOPHEN AND HYDROCODONE BITARTRATE [Suspect]
  5. ACETAMINOPHEN [Suspect]
  6. IBUPROFEN [Suspect]

REACTIONS (1)
  - COMPLETED SUICIDE [None]
